FAERS Safety Report 21868606 (Version 2)
Quarter: 2023Q1

REPORT INFORMATION
  Report Type: Spontaneous
  Country: JP (occurrence: JP)
  Receive Date: 20230117
  Receipt Date: 20230206
  Transmission Date: 20230418
  Serious: Yes (Other)
  Sender: FDA-Public Use
  Company Number: JP-TAKEDA-2023TJP000420

PATIENT
  Age: 29 Year
  Sex: Male
  Weight: 46.3 kg

DRUGS (9)
  1. TRINTELLIX [Suspect]
     Active Substance: VORTIOXETINE HYDROBROMIDE
     Indication: Depression
     Dosage: 10 MILLIGRAM, QD
     Route: 048
     Dates: start: 20221228, end: 20230104
  2. REXULTI [Concomitant]
     Active Substance: BREXPIPRAZOLE
     Indication: Depression
     Dosage: 2 MILLIGRAM, QD
     Route: 048
     Dates: start: 20221201
  3. REXULTI [Concomitant]
     Active Substance: BREXPIPRAZOLE
     Indication: Anxiety
  4. BELSOMRA [Concomitant]
     Active Substance: SUVOREXANT
     Indication: Insomnia
     Dosage: 20 MILLIGRAM, QD
     Route: 048
     Dates: start: 20221201, end: 20230116
  5. BROTIZOLAM [Concomitant]
     Active Substance: BROTIZOLAM
     Indication: Insomnia
     Dosage: 0.25 MILLIGRAM, QD
     Route: 048
     Dates: start: 20221215, end: 20230123
  6. QUETIAPINE FUMARATE [Concomitant]
     Active Substance: QUETIAPINE FUMARATE
     Indication: Insomnia
     Dosage: 25 MILLIGRAM, QD
     Route: 048
     Dates: start: 20221205, end: 20230109
  7. QUETIAPINE FUMARATE [Concomitant]
     Active Substance: QUETIAPINE FUMARATE
     Indication: Prophylaxis
  8. MIRTAZAPINE [Concomitant]
     Active Substance: MIRTAZAPINE
     Indication: Depression
     Dosage: 15 MILLIGRAM, QD
     Route: 048
     Dates: start: 20221219, end: 20230103
  9. MIRTAZAPINE [Concomitant]
     Active Substance: MIRTAZAPINE
     Indication: Insomnia

REACTIONS (1)
  - Inappropriate antidiuretic hormone secretion [Recovered/Resolved]

NARRATIVE: CASE EVENT DATE: 20221231
